FAERS Safety Report 8156117-1 (Version None)
Quarter: 2012Q1

REPORT INFORMATION
  Report Type: 
  Country: None (occurrence: None)
  Receive Date: 20120221
  Receipt Date: 20120221
  Transmission Date: 20120608
  Serious: No
  Sender: FDA-Public Use
  Company Number: None

PATIENT
  Age: 67 Year
  Sex: Male
  Weight: 65.318 kg

DRUGS (1)
  1. INFED [Suspect]
     Dosage: 25MG IVP
     Route: 042

REACTIONS (8)
  - BLOOD PRESSURE INCREASED [None]
  - RESPIRATORY RATE INCREASED [None]
  - NAUSEA [None]
  - CHEST PAIN [None]
  - VOMITING [None]
  - HEART RATE INCREASED [None]
  - ERYTHEMA [None]
  - OXYGEN SATURATION DECREASED [None]
